FAERS Safety Report 23597715 (Version 1)
Quarter: 2024Q1

REPORT INFORMATION
  Report Type: Spontaneous
  Country: NL (occurrence: NL)
  Receive Date: 20240305
  Receipt Date: 20240305
  Transmission Date: 20240409
  Serious: Yes (Other)
  Sender: FDA-Public Use
  Company Number: None

PATIENT
  Age: 68 Year
  Sex: Male
  Weight: 94 kg

DRUGS (1)
  1. PREDNISOLONE [Suspect]
     Active Substance: PREDNISOLONE
     Indication: Graft versus host disease
     Dosage: 80 MG, PREDNISOLON TABLET 30MG / BRAND NAME NOT SPECIFIED
     Route: 065
     Dates: start: 20231224

REACTIONS (2)
  - Arrhythmia [Not Recovered/Not Resolved]
  - Tremor [Not Recovered/Not Resolved]
